FAERS Safety Report 5511988-X (Version None)
Quarter: 2007Q4

REPORT INFORMATION
  Report Type: 
  Country: None (occurrence: None)
  Receive Date: 20071109
  Receipt Date: 20071102
  Transmission Date: 20080405
  Serious: Yes (Other)
  Sender: FDA-Public Use
  Company Number: CN-MERCK-0711CHN00005

PATIENT
  Age: 28 Year
  Sex: Female

DRUGS (1)
  1. PROPECIA [Suspect]
     Indication: ALOPECIA
     Route: 065

REACTIONS (6)
  - ABDOMINAL PAIN UPPER [None]
  - ABORTION SPONTANEOUS [None]
  - APLASIA [None]
  - DRUG EXPOSURE DURING PREGNANCY [None]
  - TRANSMISSION OF DRUG VIA SEMEN [None]
  - VOMITING [None]
